FAERS Safety Report 4706098-5 (Version None)
Quarter: 2005Q2

REPORT INFORMATION
  Report Type: 
  Country: None (occurrence: None)
  Receive Date: 20050627
  Receipt Date: 20050214
  Transmission Date: 20051028
  Serious: Yes (Hospitalization)
  Sender: FDA-Public Use
  Company Number: US-JNJFOC-20041100308

PATIENT
  Age: 64 Year
  Sex: Female

DRUGS (3)
  1. FENTANYL [Suspect]
     Indication: PAIN
     Dosage: 125 UG/HR, 1 IN 72 HOUR, TRANSDERMAL
     Route: 062
  2. FENTANYL [Suspect]
     Indication: PAIN
     Dosage: 100 UG/HR, 1 IN 72 HOUR, TRANSDERMAL
     Route: 062
     Dates: start: 20040909
  3. FENTANYL [Suspect]
     Indication: PAIN
     Dosage: 125 UG/HR, 1 IN 72 HOUR, TRANSDERMAL
     Route: 062
     Dates: start: 20040901

REACTIONS (1)
  - DRUG WITHDRAWAL SYNDROME [None]
